FAERS Safety Report 20819566 (Version 1)
Quarter: 2022Q2

REPORT INFORMATION
  Report Type: Spontaneous
  Country: US (occurrence: None)
  Receive Date: 20220511
  Receipt Date: 20220511
  Transmission Date: 20220721
  Serious: Yes (Other)
  Sender: FDA-Public Use
  Company Number: None

PATIENT
  Age: 25 Year
  Sex: Male
  Weight: 75.6 kg

DRUGS (8)
  1. SERTRALINE [Suspect]
     Active Substance: SERTRALINE HYDROCHLORIDE
     Indication: Social anxiety disorder
     Dosage: OTHER QUANTITY : 1 TABLET(S);?
     Route: 048
     Dates: start: 20220422, end: 20220423
  2. SERTRALINE [Suspect]
     Active Substance: SERTRALINE HYDROCHLORIDE
     Indication: Generalised anxiety disorder
  3. HYDROXYZINE [Concomitant]
  4. UNSPECIFIED INGREDIENT [Concomitant]
     Active Substance: UNSPECIFIED INGREDIENT
  5. FISH OIL\OMEGA-3 FATTY ACIDS [Concomitant]
     Active Substance: FISH OIL\OMEGA-3 FATTY ACIDS
  6. MAGNESIUM [Concomitant]
     Active Substance: MAGNESIUM
  7. IBUPROFEN [Concomitant]
     Active Substance: IBUPROFEN
  8. MELATONIN [Concomitant]
     Active Substance: MELATONIN

REACTIONS (12)
  - Serotonin syndrome [None]
  - Hallucination, visual [None]
  - Ear discomfort [None]
  - Tinnitus [None]
  - Diarrhoea [None]
  - Euphoric mood [None]
  - Fall [None]
  - Electric shock sensation [None]
  - Insomnia [None]
  - Thinking abnormal [None]
  - Symptom recurrence [None]
  - Vomiting [None]

NARRATIVE: CASE EVENT DATE: 20220422
